FAERS Safety Report 6471101-1 (Version None)
Quarter: 2009Q4

REPORT INFORMATION
  Report Type: 
  Country: None (occurrence: None)
  Receive Date: 20091203
  Receipt Date: 20091124
  Transmission Date: 20100525
  Serious: Yes (Hospitalization)
  Sender: FDA-Public Use
  Company Number: PHHY2009DE52364

PATIENT
  Sex: Female
  Weight: 70 kg

DRUGS (3)
  1. PROVAS MAXX [Suspect]
     Dosage: 40 TABLETS AT ONCE
     Route: 048
  2. DEXAMETHASONE [Suspect]
     Dosage: 3 TABLETS (24 MG) ONCE
     Route: 048
  3. MOXONIDINE [Suspect]
     Dosage: 40 TABLETS (12 MG) ONCE
     Route: 048

REACTIONS (3)
  - ILEUS PARALYTIC [None]
  - SOMNOLENCE [None]
  - SUICIDE ATTEMPT [None]
